FAERS Safety Report 11801069 (Version 1)
Quarter: 2015Q4

REPORT INFORMATION
  Report Type: Other
  Country: US (occurrence: US)
  Receive Date: 20151204
  Receipt Date: 20151204
  Transmission Date: 20160305
  Serious: Yes (Hospitalization)
  Sender: FDA-Public Use
  Company Number: US-LUPIN PHARMACEUTICALS INC.-2015-03876

PATIENT
  Age: 72 Year
  Sex: Male

DRUGS (2)
  1. MEMANTINE. [Suspect]
     Active Substance: MEMANTINE
     Dosage: DOSE TAPERED
     Route: 065
  2. MEMANTINE. [Suspect]
     Active Substance: MEMANTINE
     Indication: VASCULAR DEMENTIA
     Route: 065

REACTIONS (1)
  - Delirium [Recovered/Resolved]
